FAERS Safety Report 22335502 (Version 1)
Quarter: 2023Q2

REPORT INFORMATION
  Report Type: Spontaneous
  Country: US (occurrence: None)
  Receive Date: 20230518
  Receipt Date: 20230518
  Transmission Date: 20230721
  Serious: No
  Sender: FDA-Public Use
  Company Number: US-ROCHE-3289912

PATIENT
  Sex: Female

DRUGS (16)
  1. ACTEMRA [Suspect]
     Active Substance: TOCILIZUMAB
     Indication: Osteoporosis
     Route: 058
     Dates: start: 20200519
  2. ACTEMRA [Suspect]
     Active Substance: TOCILIZUMAB
  3. AMLODIPINE BESYLATE [Concomitant]
     Active Substance: AMLODIPINE BESYLATE
  4. CALCIUM\VITAMIN D [Concomitant]
     Active Substance: CALCIUM\VITAMIN D
  5. CLARITIN [Concomitant]
     Active Substance: LORATADINE
  6. CYANOCOBALAMIN [Concomitant]
     Active Substance: CYANOCOBALAMIN
  7. GLIMEPIRIDE [Concomitant]
     Active Substance: GLIMEPIRIDE
  8. JANUVIA [Concomitant]
     Active Substance: SITAGLIPTIN PHOSPHATE
  9. LISINOPRIL [Concomitant]
     Active Substance: LISINOPRIL
  10. MAGNESIUM [Concomitant]
     Active Substance: MAGNESIUM
  11. METFORMIN HYDROCHLORIDE [Concomitant]
     Active Substance: METFORMIN HYDROCHLORIDE
  12. NEXIUM [Concomitant]
     Active Substance: ESOMEPRAZOLE MAGNESIUM
  13. OXYBUTYNIN CHLORIDE [Concomitant]
     Active Substance: OXYBUTYNIN CHLORIDE
  14. PREDNISONE [Concomitant]
     Active Substance: PREDNISONE
  15. SIMVASTATIN [Concomitant]
     Active Substance: SIMVASTATIN
  16. TROKENDI XR [Concomitant]
     Active Substance: TOPIRAMATE

REACTIONS (2)
  - Off label use [Unknown]
  - No adverse event [Unknown]
